FAERS Safety Report 22179876 (Version 2)
Quarter: 2023Q2

REPORT INFORMATION
  Report Type: Report from Study
  Country: JP (occurrence: JP)
  Receive Date: 20230406
  Receipt Date: 20230607
  Transmission Date: 20230721
  Serious: Yes (Other)
  Sender: FDA-Public Use
  Company Number: JP-TAKEDA-2023TJP004012

PATIENT
  Age: 12 Year
  Sex: Male
  Weight: 34.4 kg

DRUGS (10)
  1. BRENTUXIMAB VEDOTIN [Suspect]
     Active Substance: BRENTUXIMAB VEDOTIN
     Indication: Anaplastic large-cell lymphoma
     Dosage: 1.8 MILLIGRAM/KILOGRAM
     Route: 065
     Dates: start: 20200629, end: 20200901
  2. METHOTREXATE [Concomitant]
     Active Substance: METHOTREXATE
     Indication: Anaplastic large-cell lymphoma
     Dosage: UNK
     Route: 065
  3. CYTARABINE [Concomitant]
     Active Substance: CYTARABINE
     Indication: Anaplastic large-cell lymphoma
     Dosage: UNK
     Route: 065
  4. SOLU-CORTEF [Concomitant]
     Active Substance: HYDROCORTISONE SODIUM SUCCINATE
     Indication: Anaplastic large-cell lymphoma
     Dosage: UNK
     Route: 065
  5. LEUCOVORIN [Concomitant]
     Active Substance: LEUCOVORIN
     Indication: Anaplastic large-cell lymphoma
     Dosage: UNK
     Route: 065
     Dates: end: 20200821
  6. CEFOZOPRAN HYDROCHLORIDE [Concomitant]
     Active Substance: CEFOZOPRAN HYDROCHLORIDE
     Indication: Infection prophylaxis
     Dosage: UNK
     Route: 065
     Dates: start: 20200703, end: 20200713
  7. MEROPENEM [Concomitant]
     Active Substance: MEROPENEM
     Indication: Infection prophylaxis
     Dosage: UNK
     Route: 065
     Dates: start: 20200713, end: 20200729
  8. FILGRASTIM [Concomitant]
     Active Substance: FILGRASTIM
     Indication: Colony stimulating factor therapy
     Dosage: UNK
     Route: 065
     Dates: start: 20200713, end: 20200718
  9. FLUCONAZOLE [Concomitant]
     Active Substance: FLUCONAZOLE
     Indication: Infection prophylaxis
     Dosage: UNK
     Route: 065
     Dates: start: 20200714, end: 20200720
  10. PENTAMIDINE [Concomitant]
     Active Substance: PENTAMIDINE
     Indication: Infection prophylaxis
     Dosage: UNK
     Route: 065

REACTIONS (4)
  - Myelosuppression [Recovered/Resolved]
  - Peripheral sensory neuropathy [Recovering/Resolving]
  - Alanine aminotransferase increased [Recovered/Resolved]
  - Aspartate aminotransferase increased [Recovered/Resolved]

NARRATIVE: CASE EVENT DATE: 20200701
